FAERS Safety Report 6434506-0 (Version None)
Quarter: 2009Q4

REPORT INFORMATION
  Report Type: 
  Country: None (occurrence: None)
  Receive Date: 20091110
  Receipt Date: 20090831
  Transmission Date: 20100525
  Serious: No
  Sender: FDA-Public Use
  Company Number: US-BAYER-200916400BCC

PATIENT
  Age: 3 Year
  Sex: Male

DRUGS (8)
  1. ALEVE (CAPLET) [Suspect]
     Indication: ACCIDENTAL DRUG INTAKE BY CHILD
     Dosage: UNIT DOSE: 220 MG
     Route: 048
     Dates: start: 20090830
  2. ACTIGALL [Concomitant]
     Route: 065
  3. VITAMIN D [Concomitant]
     Route: 065
  4. VITAMIN K TAB [Concomitant]
     Route: 065
  5. VITAMIN E [Concomitant]
     Route: 065
  6. ATARAX [Concomitant]
     Route: 065
  7. RIFAMPIN [Concomitant]
     Route: 065
  8. UNKNOWN MULTIVITAMIN [Concomitant]
     Route: 065

REACTIONS (1)
  - NO ADVERSE EVENT [None]
